FAERS Safety Report 9235451 (Version 2)
Quarter: 2013Q2

REPORT INFORMATION
  Report Type: Spontaneous
  Country: US (occurrence: None)
  Receive Date: 20121031
  Receipt Date: 20130107
  Transmission Date: 20140414
  Serious: Yes (Other)
  Sender: FDA-Public Use
  Company Number: PHEH2012US015979

PATIENT
  Age: 39 Year
  Sex: Female
  Weight: 91.2 kg

DRUGS (7)
  1. GILENYA [Suspect]
     Indication: RELAPSING-REMITTING MULTIPLE SCLEROSIS
     Route: 048
     Dates: start: 20120813
  2. LYRICA (PREGABALIN) [Concomitant]
  3. NUVIGIL (ARMODAFINIL) [Concomitant]
  4. PHENERGAN (PROMETHAZINE HYDROCHLORIDE) [Concomitant]
  5. ZOLOFT (SERTRALINE HYDROCHLORIDE) [Concomitant]
  6. ANTIDEPRESSANTS (NO INGREDIENTS/SUBSTANCES) [Concomitant]
  7. RETAMINE [Concomitant]

REACTIONS (3)
  - Heart rate decreased [None]
  - Blood pressure increased [None]
  - Muscle spasms [None]
